FAERS Safety Report 6453901-7 (Version None)
Quarter: 2009Q4

REPORT INFORMATION
  Report Type: 
  Country: None (occurrence: None)
  Receive Date: 20091116
  Receipt Date: 20091103
  Transmission Date: 20100525
  Serious: Yes (Death, Hospitalization)
  Sender: FDA-Public Use
  Company Number: B0603402A

PATIENT
  Age: 47 Year
  Sex: Male

DRUGS (5)
  1. SALMETEROL XINAFOATE (FORMULATION UNKNOWN) (GENERIC) [Suspect]
     Indication: ASTHMA
  2. ALBUTEROL SULFATE [Suspect]
     Indication: ASTHMA
     Dosage: 2 PUFFS AS REQUIRED
  3. FLUTICASONE PROPIONATE [Concomitant]
  4. TIOTROPIUM [Concomitant]
  5. IPRATROPIUM BROMIDE [Concomitant]

REACTIONS (4)
  - CARDIAC FAILURE [None]
  - CONGESTIVE CARDIOMYOPATHY [None]
  - MITRAL VALVE INCOMPETENCE [None]
  - TRICUSPID VALVE INCOMPETENCE [None]
